FAERS Safety Report 13989192 (Version 1)
Quarter: 2017Q3

REPORT INFORMATION
  Report Type: Report from Study
  Country: CN (occurrence: CN)
  Receive Date: 20170920
  Receipt Date: 20170920
  Transmission Date: 20171128
  Serious: Yes (Other)
  Sender: FDA-Public Use
  Company Number: CN-BAXTER-2017BAX033322

PATIENT

DRUGS (5)
  1. AMIODARONE [Suspect]
     Active Substance: AMIODARONE
     Indication: ACUTE MYOCARDIAL INFARCTION
     Dosage: WITH IN 10 MIN
     Route: 042
  2. AMIODARONE [Suspect]
     Active Substance: AMIODARONE
     Indication: VENTRICULAR ARRHYTHMIA
     Dosage: BY SYRINGE PUMP
     Route: 042
  3. AMIODARONE [Suspect]
     Active Substance: AMIODARONE
     Route: 042
  4. 5% GLUCOSE  INJECTION [Suspect]
     Active Substance: DEXTROSE
     Indication: MEDICATION DILUTION
     Dosage: WITH IN 10 MIN
     Route: 042
  5. AMIODARONE [Suspect]
     Active Substance: AMIODARONE
     Route: 048

REACTIONS (1)
  - Sinus bradycardia [Unknown]
